FAERS Safety Report 19871340 (Version 2)
Quarter: 2021Q3

REPORT INFORMATION
  Report Type: Spontaneous
  Country: US (occurrence: US)
  Receive Date: 20210923
  Receipt Date: 20210927
  Transmission Date: 20211014
  Serious: Yes (Death)
  Sender: FDA-Public Use
  Company Number: US-JNJFOC-20210928857

PATIENT
  Sex: Male

DRUGS (1)
  1. VISINE UNSPECIFIED [Suspect]
     Active Substance: TETRAHYDROZOLINE HYDROCHLORIDE
     Indication: PRODUCT USED FOR UNKNOWN INDICATION
     Route: 048
     Dates: start: 20180718

REACTIONS (5)
  - Intentional product misuse [Fatal]
  - Poisoning deliberate [Fatal]
  - Abdominal discomfort [Fatal]
  - Illness [Fatal]
  - Toxicity to various agents [Fatal]

NARRATIVE: CASE EVENT DATE: 20180718
